FAERS Safety Report 17255632 (Version 1)
Quarter: 2020Q1

REPORT INFORMATION
  Report Type: Spontaneous
  Country: FR (occurrence: FR)
  Receive Date: 20200110
  Receipt Date: 20200110
  Transmission Date: 20200409
  Serious: Yes (Other)
  Sender: FDA-Public Use
  Company Number: FR-AMGEN-FRASP2020001729

PATIENT
  Age: 51 Year
  Sex: Female
  Weight: 77 kg

DRUGS (4)
  1. IRINOTECAN [Suspect]
     Active Substance: IRINOTECAN
     Indication: ADENOCARCINOMA
     Dosage: 340 MILLIGRAM, Q2WK
     Route: 041
     Dates: start: 20191115, end: 20191213
  2. FLUOROURACILE [Suspect]
     Active Substance: FLUOROURACIL
     Indication: ADENOCARCINOMA
     Dosage: 4550 MILLIGRAM, Q2WK
     Route: 041
     Dates: start: 20191115, end: 20191213
  3. FLUOROURACILE [Suspect]
     Active Substance: FLUOROURACIL
     Dosage: 750 MILLIGRAM, Q2WK
     Route: 040
     Dates: start: 20191115, end: 20191213
  4. VECTIBIX [Suspect]
     Active Substance: PANITUMUMAB
     Indication: ADENOCARCINOMA
     Dosage: 460 MILLIGRAM, Q2WK
     Route: 041
     Dates: start: 20191115, end: 20191213

REACTIONS (3)
  - Colitis [Not Recovered/Not Resolved]
  - Weight decreased [Not Recovered/Not Resolved]
  - Diarrhoea [Not Recovered/Not Resolved]

NARRATIVE: CASE EVENT DATE: 20191116
